FAERS Safety Report 11969199 (Version 1)
Quarter: 2016Q1

REPORT INFORMATION
  Report Type: Spontaneous
  Country: US (occurrence: US)
  Receive Date: 20160128
  Receipt Date: 20160128
  Transmission Date: 20160526
  Serious: No
  Sender: FDA-Public Use
  Company Number: PHEH2015US003608

PATIENT
  Sex: Female

DRUGS (2)
  1. TASIGNA [Suspect]
     Active Substance: NILOTINIB
     Indication: PRODUCT USED FOR UNKNOWN INDICATION
     Dosage: 2 DF, BID
     Route: 065
  2. TASIGNA [Suspect]
     Active Substance: NILOTINIB
     Route: 065

REACTIONS (5)
  - Back pain [Unknown]
  - Arthralgia [Unknown]
  - Myalgia [Recovered/Resolved]
  - Pain [Recovered/Resolved]
  - Bone pain [Unknown]
